FAERS Safety Report 5408401-X (Version None)
Quarter: 2007Q3

REPORT INFORMATION
  Report Type: 
  Country: None (occurrence: None)
  Receive Date: 20070806
  Receipt Date: 20070629
  Transmission Date: 20080115
  Serious: Yes (Other)
  Sender: FDA-Public Use
  Company Number: 2007SP013177

PATIENT
  Age: 74 Year
  Sex: Male

DRUGS (1)
  1. NASONEX [Suspect]
     Indication: NASAL CONGESTION
     Dosage: 50 MCG; BID NAS
     Route: 045
     Dates: start: 20060620, end: 20060628

REACTIONS (1)
  - ANOSMIA [None]
